FAERS Safety Report 7631822-1 (Version None)
Quarter: 2011Q3

REPORT INFORMATION
  Report Type: 
  Country: None (occurrence: None)
  Receive Date: 20110725
  Receipt Date: 20110407
  Transmission Date: 20111222
  Serious: No
  Sender: FDA-Public Use
  Company Number: US-BRISTOL-MYERS SQUIBB COMPANY-15659014

PATIENT
  Age: 69 Year
  Sex: Female
  Weight: 82 kg

DRUGS (2)
  1. WARFARIN SODIUM [Suspect]
     Indication: PULMONARY EMBOLISM
     Dates: start: 20100401
  2. VITAMIN D [Concomitant]
     Dosage: 1DF:50,000  UNIT NOS.

REACTIONS (3)
  - TRICHORRHEXIS [None]
  - ALOPECIA [None]
  - INTERNATIONAL NORMALISED RATIO FLUCTUATION [None]
